FAERS Safety Report 8170152-9 (Version None)
Quarter: 2012Q1

REPORT INFORMATION
  Report Type: 
  Country: None (occurrence: None)
  Receive Date: 20120228
  Receipt Date: 20120221
  Transmission Date: 20120608
  Serious: Yes (Other)
  Sender: FDA-Public Use
  Company Number: PHHY2012CO015318

PATIENT
  Sex: Female

DRUGS (6)
  1. BISOPROLOL FUMARATE [Concomitant]
     Indication: BLOOD PRESSURE
     Dosage: UNK UKN, 1 TABLET DAILY
  2. ZOLEDRONOC ACID [Suspect]
     Indication: OSTEOPOROSIS
     Dosage: 5 MG, UNK
     Route: 042
     Dates: start: 20101112
  3. PLAVIX [Concomitant]
     Dosage: UNK UKN, 1 TABLET DAILY
  4. ALDACTONE [Concomitant]
     Dosage: 25 MG, DAILY
  5. ATORVASTATIN [Concomitant]
     Dosage: UNK UKN, 1 TABLET DAILY
  6. ACETYLSALICYLIC ACID SRT [Concomitant]
     Dosage: UNK UKN, UNK

REACTIONS (4)
  - PARALYSIS [None]
  - ISCHAEMIA [None]
  - DIZZINESS [None]
  - TONGUE PARALYSIS [None]
